FAERS Safety Report 17683893 (Version 1)
Quarter: 2020Q2

REPORT INFORMATION
  Report Type: Spontaneous
  Country: CN (occurrence: CN)
  Receive Date: 20200420
  Receipt Date: 20200420
  Transmission Date: 20200714
  Serious: Yes (Hospitalization, Other)
  Sender: FDA-Public Use
  Company Number: CN-SA-2020SA099047

PATIENT
  Age: 60 Year
  Sex: Female

DRUGS (1)
  1. LYXUMIA [Suspect]
     Active Substance: LIXISENATIDE
     Indication: BLOOD GLUCOSE INCREASED
     Dosage: 20 UG
     Route: 058

REACTIONS (2)
  - Acute coronary syndrome [Unknown]
  - Blood glucose decreased [Unknown]
